FAERS Safety Report 6952754-8 (Version None)
Quarter: 2010Q3

REPORT INFORMATION
  Report Type: 
  Country: None (occurrence: None)
  Receive Date: 20100829
  Receipt Date: 20100512
  Transmission Date: 20110219
  Serious: No
  Sender: FDA-Public Use
  Company Number: US-ABBOTT-10P-163-0645459-00

PATIENT
  Sex: Male
  Weight: 79.904 kg

DRUGS (8)
  1. NIASPAN [Suspect]
     Indication: BLOOD CHOLESTEROL INCREASED
     Dates: start: 20000101, end: 20100501
  2. NIASPAN [Suspect]
     Dates: start: 20100501
  3. VITAMIN B-12 [Concomitant]
     Indication: VITAMIN SUPPLEMENTATION
     Dates: end: 20100501
  4. VITAMIN B-12 [Concomitant]
     Dates: start: 20100501
  5. LOVASTATIN [Concomitant]
     Indication: HYPERLIPIDAEMIA
  6. FISH OIL [Concomitant]
     Indication: CARDIAC DISORDER
  7. ALLOPURINOL [Concomitant]
     Indication: GOUT
  8. SLOW MAGNESIUM [Concomitant]
     Indication: MINERAL SUPPLEMENTATION

REACTIONS (5)
  - ARTERIOSCLEROSIS CORONARY ARTERY [None]
  - BLOOD URIC ACID INCREASED [None]
  - FLUSHING [None]
  - NEPHROPATHY [None]
  - VITAMIN B12 INCREASED [None]
